FAERS Safety Report 5155714-5 (Version None)
Quarter: 2006Q4

REPORT INFORMATION
  Report Type: 
  Country: None (occurrence: None)
  Receive Date: 20061114
  Receipt Date: 20061030
  Transmission Date: 20070319
  Serious: Yes (Life-Threatening, Hospitalization, Disabling, Other)
  Sender: FDA-Public Use
  Company Number: 2006045994

PATIENT
  Age: 58 Year
  Sex: Female
  Weight: 62.1428 kg

DRUGS (9)
  1. SUTENT [Suspect]
     Indication: BREAST CANCER
     Dosage: 37.5 MG (37.5 MG, 1 IN 1 D), ORAL
     Route: 048
     Dates: start: 20060313
  2. MULTIVITAMIN [Concomitant]
  3. VICODIN [Concomitant]
  4. MONTELUKAST SODIUM (MONTELUKAST SODIUM) [Concomitant]
  5. LEXAPRO [Concomitant]
  6. ADVAIR DISKUS 100/50 [Concomitant]
  7. ALBUTEROL [Concomitant]
  8. PROTONIX [Concomitant]
  9. LEVAQUIN [Concomitant]

REACTIONS (6)
  - ASTHMA [None]
  - CONDITION AGGRAVATED [None]
  - DYSPNOEA [None]
  - NAUSEA [None]
  - RESPIRATORY DISORDER [None]
  - VOMITING [None]
